FAERS Safety Report 10469366 (Version 1)
Quarter: 2014Q3

REPORT INFORMATION
  Report Type: Spontaneous
  Country: US (occurrence: None)
  Receive Date: 20140922
  Receipt Date: 20140922
  Transmission Date: 20150326
  Serious: Yes (Life-Threatening)
  Sender: FDA-Public Use
  Company Number: None

PATIENT
  Age: 64 Year
  Sex: Male
  Weight: 109.32 kg

DRUGS (12)
  1. PRAVASTATIN [Concomitant]
     Active Substance: PRAVASTATIN\PRAVASTATIN SODIUM
  2. OMEPRAZOLE. [Concomitant]
     Active Substance: OMEPRAZOLE
  3. RANITIDINE [Concomitant]
     Active Substance: RANITIDINE\RANITIDINE HYDROCHLORIDE
  4. TAMSULOSIN [Concomitant]
     Active Substance: TAMSULOSIN
  5. LISINOPRIL AND HYDROCHLOROTHIAZIDE [Concomitant]
     Active Substance: HYDROCHLOROTHIAZIDE\LISINOPRIL
  6. METOPROLOL [Concomitant]
     Active Substance: METOPROLOL
  7. AMLODIPINE [Concomitant]
     Active Substance: AMLODIPINE BESYLATE
  8. ISOSORBIDE MONO [Concomitant]
  9. FOSAMAX [Concomitant]
     Active Substance: ALENDRONATE SODIUM
  10. ASPIRIN. [Concomitant]
     Active Substance: ASPIRIN
  11. SOVALDI [Suspect]
     Active Substance: SOFOSBUVIR
     Indication: HEPATITIS C
     Dosage: 1 TABLET QD ORAL
     Route: 048
     Dates: start: 20140808, end: 20140919
  12. RIBASPHERE RIBAPAK [Suspect]
     Active Substance: RIBAVIRIN
     Indication: HEPATITIS C
     Route: 048
     Dates: start: 20140808, end: 20140919

REACTIONS (2)
  - Myocardial infarction [None]
  - Cerebrovascular accident [None]
